FAERS Safety Report 7114472-5 (Version None)
Quarter: 2010Q4

REPORT INFORMATION
  Report Type: 
  Country: None (occurrence: None)
  Receive Date: 20101119
  Receipt Date: 20101116
  Transmission Date: 20110411
  Serious: Yes (Life-Threatening, Hospitalization)
  Sender: FDA-Public Use
  Company Number: DE-B.I. PHARMACEUTICALS,INC./RIDGEFIELD-2010-DE-06359DE

PATIENT
  Age: 85 Year
  Sex: Male

DRUGS (12)
  1. MICARDIS HCT [Suspect]
     Indication: HYPERTENSION
     Dosage: 1 ANZ
     Route: 048
     Dates: end: 20080411
  2. DIGITOXIN [Suspect]
     Indication: TACHYARRHYTHMIA
     Dosage: 0.07 MG
     Route: 048
     Dates: end: 20080412
  3. TORASEMIDE [Suspect]
     Indication: HYPERTENSION
     Dosage: 20-10-0 MG
     Route: 048
     Dates: end: 20080411
  4. RASILEZ [Suspect]
     Indication: HYPERTENSION
     Dosage: 150 MG
     Route: 048
     Dates: end: 20080411
  5. FALITHROM [Concomitant]
     Indication: AORTIC VALVE REPLACEMENT
     Route: 048
     Dates: start: 19940101
  6. PLASTULEN [Concomitant]
     Indication: IRON DEFICIENCY
     Dosage: 1 ANZ
     Route: 048
  7. METAMIZOL NATRIUM [Concomitant]
     Indication: PAIN
     Dosage: 3000 MG
     Route: 048
  8. RISPERDAL [Concomitant]
     Indication: DEMENTIA
     Dosage: 1 MG
     Route: 048
  9. ALENDRONIC ACID [Concomitant]
     Indication: RIB FRACTURE
     Dosage: 10 MG
     Route: 048
  10. PREGABALIN [Concomitant]
     Indication: PAIN
     Dosage: 25 MG
     Route: 048
  11. PIPAMPERONE [Concomitant]
     Indication: PAIN
     Dosage: 10-0-20 MG
     Route: 048
  12. FENTANYL [Concomitant]
     Indication: PAIN
     Dosage: 1800 MCG
     Route: 062

REACTIONS (2)
  - BRADYARRHYTHMIA [None]
  - SYNCOPE [None]
